FAERS Safety Report 14682923 (Version 2)
Quarter: 2018Q2

REPORT INFORMATION
  Report Type: Spontaneous
  Country: FR (occurrence: FR)
  Receive Date: 20180327
  Receipt Date: 20180402
  Transmission Date: 20180711
  Serious: Yes (Hospitalization)
  Sender: FDA-Public Use
  Company Number: FR-ABBVIE-18S-056-2300263-00

PATIENT
  Age: 5 Year
  Sex: Male

DRUGS (10)
  1. SUFENTA [Concomitant]
     Active Substance: SUFENTANIL CITRATE
     Indication: ANAESTHESIA
     Route: 065
  2. MORPHINE [Concomitant]
     Active Substance: MORPHINE
     Indication: ANAESTHESIA
     Route: 065
  3. SEVORANE [Suspect]
     Active Substance: SEVOFLURANE
     Indication: ANAESTHESIA
     Route: 055
  4. DIPRIVAN [Suspect]
     Active Substance: PROPOFOL
     Indication: ANAESTHESIA
     Route: 065
  5. DEXTROSE. [Concomitant]
     Active Substance: DEXTROSE
     Indication: ANAESTHESIA
     Route: 065
  6. TRACRIUM [Concomitant]
     Active Substance: ATRACURIUM BESYLATE
     Indication: ANAESTHESIA
     Route: 065
  7. NAGLAZYME [Suspect]
     Active Substance: GALSULFASE
     Indication: MUCOPOLYSACCHARIDOSIS VI
     Dosage: 1 MG/KG, QW
     Route: 042
  8. PERFALGAN [Concomitant]
     Active Substance: ACETAMINOPHEN
     Indication: ANAESTHESIA
     Route: 065
  9. CELOCURINE [Concomitant]
     Active Substance: SUCCINYLCHOLINE CHLORIDE
     Indication: ANAESTHESIA
     Route: 065
  10. ZOPHREN [Concomitant]
     Active Substance: ONDANSETRON
     Indication: ANAESTHESIA
     Route: 065

REACTIONS (3)
  - Airway complication of anaesthesia [Unknown]
  - Glomerulonephritis membranous [Recovered/Resolved]
  - Anoxia [Unknown]
